FAERS Safety Report 7545910-1 (Version None)
Quarter: 2011Q2

REPORT INFORMATION
  Report Type: 
  Country: None (occurrence: None)
  Receive Date: 20110613
  Receipt Date: 20110613
  Transmission Date: 20111010
  Serious: No
  Sender: FDA-Public Use
  Company Number: None

PATIENT

DRUGS (1)
  1. HUMALOG PEN [Suspect]
     Dates: end: 20110501

REACTIONS (5)
  - INCORRECT DOSE ADMINISTERED BY DEVICE [None]
  - DEVICE LEAKAGE [None]
  - DEVICE MALFUNCTION [None]
  - PRODUCT CONTAINER SEAL ISSUE [None]
  - PRODUCT QUALITY ISSUE [None]
